FAERS Safety Report 8423631-0 (Version None)
Quarter: 2012Q2

REPORT INFORMATION
  Report Type: 
  Country: None (occurrence: None)
  Receive Date: 20120608
  Receipt Date: 20120606
  Transmission Date: 20120825
  Serious: Yes (Hospitalization, Other)
  Sender: FDA-Public Use
  Company Number: JP-PFIZER INC-2012136609

PATIENT
  Age: 81 Year
  Sex: Female

DRUGS (4)
  1. LYRICA [Suspect]
     Dosage: 50 MG, 1X/DAY
     Route: 048
     Dates: start: 20120601
  2. PREDNISOLONE [Concomitant]
     Dosage: 12.5 MG, 1X/DAY
     Route: 048
  3. LOXONIN [Concomitant]
     Dosage: 60 MG, 1X/DAY
     Route: 048
  4. VOLTAREN [Concomitant]
     Dosage: 25 MG, 1X/DAY
     Route: 054

REACTIONS (1)
  - CHOLECYSTITIS ACUTE [None]
